FAERS Safety Report 9978109 (Version 1)
Quarter: 2014Q1

REPORT INFORMATION
  Report Type: Spontaneous
  Country: US (occurrence: US)
  Receive Date: 20140306
  Receipt Date: 20140306
  Transmission Date: 20141002
  Serious: No
  Sender: FDA-Public Use
  Company Number: US-PFIZER INC-2014062582

PATIENT
  Age: 31 Year
  Sex: Female
  Weight: 58.96 kg

DRUGS (3)
  1. LYRICA [Suspect]
     Dosage: 25 MG, 2X/DAY (BY TAKING 25MG IN THE MORNING AND 25MG AT NIGHT)
     Route: 048
     Dates: start: 201401, end: 201402
  2. LYRICA [Suspect]
     Dosage: 25MG IN THE MORNING AND 50MG AT NIGHT
     Route: 048
     Dates: start: 201402, end: 20140301
  3. SERTRALINE [Concomitant]
     Dosage: 25 MG, UNK

REACTIONS (6)
  - Somnolence [Unknown]
  - Disturbance in attention [Unknown]
  - Activities of daily living impaired [Unknown]
  - Social avoidant behaviour [Unknown]
  - Aphasia [Unknown]
  - Weight increased [Unknown]
